FAERS Safety Report 12765123 (Version 1)
Quarter: 2016Q3

REPORT INFORMATION
  Report Type: Spontaneous
  Country: US (occurrence: US)
  Receive Date: 20160921
  Receipt Date: 20160921
  Transmission Date: 20161109
  Serious: No
  Sender: FDA-Public Use
  Company Number: US-TEVA-668693USA

PATIENT
  Sex: Male

DRUGS (1)
  1. NEFAZODONE [Suspect]
     Active Substance: NEFAZODONE

REACTIONS (3)
  - Product odour abnormal [Unknown]
  - Drug effect decreased [Unknown]
  - Dizziness [Unknown]
